FAERS Safety Report 21746088 (Version 2)
Quarter: 2022Q4

REPORT INFORMATION
  Report Type: Report from Study
  Country: IN (occurrence: IN)
  Receive Date: 20221219
  Receipt Date: 20221230
  Transmission Date: 20230113
  Serious: Yes (Other)
  Sender: FDA-Public Use
  Company Number: IN-TAKEDA-2022TUS043475

PATIENT
  Age: 58 Year
  Sex: Male
  Weight: 55 kg

DRUGS (11)
  1. VEDOLIZUMAB [Suspect]
     Active Substance: VEDOLIZUMAB
     Indication: Crohn^s disease
     Dosage: 300 MILLIGRAM
     Route: 042
     Dates: start: 20211126
  2. Saaz ds [Concomitant]
     Dosage: UNK
  3. PREDNISOLONE [Concomitant]
     Active Substance: PREDNISOLONE
     Dosage: 5 MILLIGRAM
  4. Bevon [Concomitant]
     Dosage: UNK
  5. PROBIOTICS NOS [Concomitant]
     Active Substance: PROBIOTICS NOS
     Dosage: UNK
  6. NEXITO PLUS [Concomitant]
     Dosage: UNK
  7. RAZO [Concomitant]
     Dosage: UNK
  8. BUDEX DS [Concomitant]
     Dosage: 9 MILLIGRAM
  9. Vitcofol [Concomitant]
     Dosage: UNK
  10. LUPIHEME [Concomitant]
     Dosage: UNK
  11. FOLVITE [Concomitant]
     Active Substance: FOLIC ACID
     Dosage: UNK

REACTIONS (6)
  - Laryngeal oedema [Unknown]
  - Frequent bowel movements [Unknown]
  - Mucous stools [Unknown]
  - Weight increased [Unknown]
  - Pharyngitis [Unknown]
  - Inappropriate schedule of product administration [Unknown]
